FAERS Safety Report 5301565-8 (Version None)
Quarter: 2007Q2

REPORT INFORMATION
  Report Type: 
  Country: None (occurrence: None)
  Receive Date: 20070412
  Receipt Date: 20070330
  Transmission Date: 20071010
  Serious: Yes (Death)
  Sender: FDA-Public Use
  Company Number: 2007RR-06497

PATIENT
  Age: 21 Year
  Sex: Female

DRUGS (2)
  1. LODINE [Suspect]
     Dosage: 600 MG
  2. DOTHIEPIN(DOTHIEPIN) [Suspect]

REACTIONS (2)
  - SELF-MEDICATION [None]
  - WRONG DRUG ADMINISTERED [None]
